FAERS Safety Report 6647654-7 (Version None)
Quarter: 2010Q1

REPORT INFORMATION
  Report Type: 
  Country: None (occurrence: None)
  Receive Date: 20100323
  Receipt Date: 20100323
  Transmission Date: 20100710
  Serious: Yes (Other)
  Sender: FDA-Public Use
  Company Number: None

PATIENT
  Age: 52 Year
  Sex: Male
  Weight: 113.3993 kg

DRUGS (1)
  1. COREG [Suspect]
     Indication: HYPERTENSION
     Dosage: 6.25 MG BID ORAL
     Route: 048
     Dates: start: 20090805, end: 20100107

REACTIONS (2)
  - NO THERAPEUTIC RESPONSE [None]
  - PRODUCT SUBSTITUTION ISSUE [None]
